FAERS Safety Report 6103024-1 (Version None)
Quarter: 2009Q1

REPORT INFORMATION
  Report Type: 
  Country: None (occurrence: None)
  Receive Date: 20090305
  Receipt Date: 20090304
  Transmission Date: 20090719
  Serious: Yes (Hospitalization)
  Sender: FDA-Public Use
  Company Number: PHHO2006US06172

PATIENT
  Sex: Male

DRUGS (11)
  1. LOTREL [Suspect]
     Indication: HYPERTENSION
     Dosage: LEVEL 1
     Route: 048
     Dates: start: 20040428, end: 20040531
  2. LOTREL [Suspect]
     Dosage: LEVEL 2
     Route: 048
     Dates: start: 20040601, end: 20050419
  3. LOTREL [Suspect]
     Dosage: OFF DRUG
     Dates: start: 20050420, end: 20050422
  4. LOTREL [Suspect]
     Dosage: LEVEL 2
     Route: 048
     Dates: start: 20050423, end: 20050428
  5. LOTREL [Suspect]
     Dosage: LEVEL 1
     Route: 048
     Dates: start: 20050429, end: 20050530
  6. ACTOS [Concomitant]
     Indication: DIABETES MELLITUS
     Dosage: UNK, QD
     Route: 048
  7. LEXAPRO [Concomitant]
     Indication: DEPRESSION
     Dosage: UNK, QD
     Route: 048
  8. LASIX [Concomitant]
     Indication: HYPERTENSION
     Dosage: UNK, QD
     Route: 048
  9. KLOR-CON [Concomitant]
     Dosage: UNK, QD
     Route: 048
  10. TOPROL-XL [Concomitant]
     Indication: HYPERTENSION
     Dosage: UNK, QD
     Route: 048
  11. AMARYL [Concomitant]
     Indication: DIABETES MELLITUS
     Dosage: UNK, QD
     Route: 048

REACTIONS (3)
  - HEADACHE [None]
  - ORTHOSTATIC HYPOTENSION [None]
  - SYNCOPE [None]
